FAERS Safety Report 20880023 (Version 1)
Quarter: 2022Q2

REPORT INFORMATION
  Report Type: Spontaneous
  Country: US (occurrence: US)
  Receive Date: 20220526
  Receipt Date: 20220526
  Transmission Date: 20220721
  Serious: No
  Sender: FDA-Public Use
  Company Number: US-RADIUS HEALTH INC.-2021US005258

PATIENT
  Sex: Female

DRUGS (5)
  1. TYMLOS [Suspect]
     Active Substance: ABALOPARATIDE
     Indication: Senile osteoporosis
     Dosage: 80 MICROGRAM, QD
     Route: 058
     Dates: start: 20210916, end: 20211116
  2. CRESTOR [Concomitant]
     Active Substance: ROSUVASTATIN CALCIUM
     Indication: Product used for unknown indication
  3. ESCITALOPRAM [Concomitant]
     Active Substance: ESCITALOPRAM OXALATE
     Indication: Product used for unknown indication
  4. OMEPRAZOLE [Concomitant]
     Active Substance: OMEPRAZOLE
     Indication: Product used for unknown indication
  5. CALCITONIN [Concomitant]
     Active Substance: CALCITONIN
     Indication: Product used for unknown indication
     Dosage: UNK

REACTIONS (5)
  - Urinary incontinence [Not Recovered/Not Resolved]
  - Tinnitus [Not Recovered/Not Resolved]
  - Blood calcium increased [Not Recovered/Not Resolved]
  - Palpitations [Not Recovered/Not Resolved]
  - Abdominal pain upper [Not Recovered/Not Resolved]
